FAERS Safety Report 9384675 (Version 1)
Quarter: 2013Q3

REPORT INFORMATION
  Report Type: Spontaneous
  Country: AU (occurrence: AU)
  Receive Date: 20130705
  Receipt Date: 20130705
  Transmission Date: 20140515
  Serious: Yes (Other)
  Sender: FDA-Public Use
  Company Number: AU-PFIZER INC-2013198192

PATIENT
  Age: 77 Year
  Sex: Male

DRUGS (1)
  1. CORDARONE X [Suspect]
     Dosage: 200 MG, UNK
     Route: 065
     Dates: start: 201306

REACTIONS (1)
  - Polycythaemia [Unknown]
